FAERS Safety Report 20966648 (Version 3)
Quarter: 2022Q3

REPORT INFORMATION
  Report Type: Spontaneous
  Country: ES (occurrence: ES)
  Receive Date: 20220616
  Receipt Date: 20220801
  Transmission Date: 20221026
  Serious: Yes (Hospitalization)
  Sender: FDA-Public Use
  Company Number: ES-JNJFOC-20220620525

PATIENT
  Age: 53 Year
  Sex: Male

DRUGS (10)
  1. PALIPERIDONE PALMITATE [Suspect]
     Active Substance: PALIPERIDONE PALMITATE
     Indication: Schizophrenia
     Dosage: RECEIVED ONE DOSE
     Route: 030
     Dates: start: 20220530
  2. PALIPERIDONE PALMITATE [Suspect]
     Active Substance: PALIPERIDONE PALMITATE
  3. APIXABAN [Concomitant]
     Active Substance: APIXABAN
  4. BIPERIDEN [Concomitant]
     Active Substance: BIPERIDEN
  5. AMLODIPINE [Concomitant]
     Active Substance: AMLODIPINE BESYLATE
  6. LORAZEPAM [Concomitant]
     Active Substance: LORAZEPAM
  7. RISPERIDONE [Concomitant]
     Active Substance: RISPERIDONE
     Dosage: 1MG BUT 2 TABLETS PER DAY
  8. DULOXETINE [Concomitant]
     Active Substance: DULOXETINE
  9. LORMETAZEPAM [Concomitant]
     Active Substance: LORMETAZEPAM
     Dosage: AT 23H
  10. ENALAPRIL [Concomitant]
     Active Substance: ENALAPRIL

REACTIONS (4)
  - Seizure [Unknown]
  - Pneumonia [Recovered/Resolved]
  - Schizophrenia [Unknown]
  - Haemodynamic instability [Unknown]

NARRATIVE: CASE EVENT DATE: 20220531
